FAERS Safety Report 8414818-1 (Version None)
Quarter: 2012Q2

REPORT INFORMATION
  Report Type: 
  Country: None (occurrence: None)
  Receive Date: 20120606
  Receipt Date: 20120601
  Transmission Date: 20120825
  Serious: Yes (Hospitalization)
  Sender: FDA-Public Use
  Company Number: CA-BIOGENIDEC-2012BI019680

PATIENT
  Age: 36 Year
  Sex: Male

DRUGS (1)
  1. AVONEX [Suspect]
     Indication: MULTIPLE SCLEROSIS
     Route: 030
     Dates: start: 20120127, end: 20120524

REACTIONS (7)
  - MIGRAINE [None]
  - CONTUSION [None]
  - TESTICULAR DISORDER [None]
  - PANCREATITIS [None]
  - SKIN INDURATION [None]
  - GENITAL INJURY [None]
  - VASECTOMY [None]
